FAERS Safety Report 23146253 (Version 2)
Quarter: 2023Q4

REPORT INFORMATION
  Report Type: Spontaneous
  Country: GB (occurrence: GB)
  Receive Date: 20231104
  Receipt Date: 20231115
  Transmission Date: 20240110
  Serious: Yes (Other)
  Sender: FDA-Public Use
  Company Number: GB-Flamingo-016256

PATIENT
  Sex: Male

DRUGS (1)
  1. NORTRIPTYLINE HYDROCHLORIDE [Suspect]
     Active Substance: NORTRIPTYLINE HYDROCHLORIDE
     Indication: Product used for unknown indication
     Dosage: 10 MILLIGRAM,10 MILLIGRAM X 4
     Route: 065

REACTIONS (7)
  - Throat irritation [Not Recovered/Not Resolved]
  - Foreign body in throat [Unknown]
  - Pharyngeal swelling [Unknown]
  - Respiratory rate decreased [Unknown]
  - Abdominal discomfort [Unknown]
  - Gastrooesophageal reflux disease [Unknown]
  - Retching [Unknown]
